FAERS Safety Report 5683886-2 (Version None)
Quarter: 2008Q1

REPORT INFORMATION
  Report Type: 
  Country: None (occurrence: None)
  Receive Date: 20080327
  Receipt Date: 20080327
  Transmission Date: 20080703
  Serious: Yes (Other)
  Sender: FDA-Public Use
  Company Number: None

PATIENT
  Sex: Male

DRUGS (2)
  1. CITALOPRAM HYDROBROMIDE [Suspect]
     Indication: DEPRESSION
     Dosage: 40MG DAILY PO
     Route: 048
     Dates: start: 20080129, end: 20080310
  2. CITALOPRAM HYDROBROMIDE [Suspect]
     Indication: PANIC DISORDER
     Dosage: 40MG DAILY PO
     Route: 048
     Dates: start: 20080129, end: 20080310

REACTIONS (3)
  - DEPRESSION [None]
  - OVERDOSE [None]
  - SUICIDAL IDEATION [None]
